FAERS Safety Report 9537002 (Version 3)
Quarter: 2013Q4

REPORT INFORMATION
  Report Type: Spontaneous
  Country: US (occurrence: US)
  Receive Date: 20130919
  Receipt Date: 20131108
  Transmission Date: 20140711
  Serious: Yes (Hospitalization, Other)
  Sender: FDA-Public Use
  Company Number: US-DENDREON CORPORATION-2013PROUSA03142

PATIENT
  Age: 78 Year
  Sex: Male
  Weight: 106.12 kg

DRUGS (9)
  1. PROVENGE [Suspect]
     Indication: PROSTATE CANCER METASTATIC
     Dosage: 250 ML, SINGLE
     Route: 042
     Dates: start: 20130808, end: 20130808
  2. PROVENGE [Suspect]
     Dosage: 250 ML, SINGLE
     Route: 042
     Dates: start: 20130822, end: 20130822
  3. NORVASC [Concomitant]
     Dosage: 10 MG, QD
     Route: 048
  4. CASODEX [Concomitant]
     Dosage: 50 MG, UNK
  5. CLONIDINE [Concomitant]
     Dosage: 0.2 MG, BID
     Route: 048
  6. LOSARTAN POTASSIUM AND HYDROCHLOROTHIAZIDE [Concomitant]
     Dosage: 1 TABLETS, QD
     Route: 048
  7. PLAVIX [Concomitant]
     Dosage: 75 MG, QD
  8. TEKTURNA [Concomitant]
     Dosage: 300 MG, QD
     Route: 048
  9. ZOCOR [Concomitant]
     Dosage: 10 MG, HS

REACTIONS (3)
  - Humerus fracture [Recovered/Resolved]
  - Spinal cord compression [Unknown]
  - Fall [Unknown]
